FAERS Safety Report 5371505-4 (Version None)
Quarter: 2007Q2

REPORT INFORMATION
  Report Type: 
  Country: None (occurrence: None)
  Receive Date: 20070615
  Receipt Date: 20060908
  Transmission Date: 20071010
  Serious: Yes (Other)
  Sender: FDA-Public Use
  Company Number: 200617584US

PATIENT
  Age: 59 Year
  Sex: Male
  Weight: 84 kg

DRUGS (4)
  1. LANTUS [Suspect]
     Indication: DIABETES MELLITUS INSULIN-DEPENDENT
     Dosage: 100 U/DAY
     Dates: start: 20060101
  2. CHOLESTEROL MEDICATION [Concomitant]
  3. THYROID TAB [Concomitant]
  4. REGULAR INSULIN [Concomitant]

REACTIONS (1)
  - HYPOGLYCAEMIA [None]
